FAERS Safety Report 19467047 (Version 1)
Quarter: 2021Q2

REPORT INFORMATION
  Report Type: Spontaneous
  Country: US (occurrence: US)
  Receive Date: 20210628
  Receipt Date: 20210628
  Transmission Date: 20210717
  Serious: Yes (Other)
  Sender: FDA-Public Use
  Company Number: US-DRREDDYS-SPO/USA/21/0136865

PATIENT
  Age: 70 Year
  Sex: Male

DRUGS (1)
  1. ZENATANE [Suspect]
     Active Substance: ISOTRETINOIN
     Indication: PRODUCT USED FOR UNKNOWN INDICATION
     Dosage: RMA ISSUE DATE: 2 MARCH 2021 6:35:56 PM, 6 APRIL 2021 1:17:38 PM, 13 MAY 2021 7:08:56 PM

REACTIONS (3)
  - Haematochezia [Unknown]
  - Mood altered [Unknown]
  - Adverse drug reaction [Unknown]
